FAERS Safety Report 16001261 (Version 1)
Quarter: 2019Q1

REPORT INFORMATION
  Report Type: Spontaneous
  Country: US (occurrence: US)
  Receive Date: 20190224
  Receipt Date: 20190224
  Transmission Date: 20190418
  Serious: Yes (Disabling, Other)
  Sender: FDA-Public Use
  Company Number: None

PATIENT
  Age: 39 Year
  Sex: Female
  Weight: 60.3 kg

DRUGS (1)
  1. DEXTROAMPHET SACCHARAT, AMPHET ASPARTATE, DEXTROAMPHET SULFATE AND AMPHET SULFAT [Suspect]
     Active Substance: AMPHETAMINE ASPARTATE\AMPHETAMINE SULFATE\DEXTROAMPHETAMINE SACCHARATE\DEXTROAMPHETAMINE SULFATE
     Indication: ATTENTION DEFICIT/HYPERACTIVITY DISORDER
     Dosage: ?          QUANTITY:60 TABLET(S);?
     Route: 048
     Dates: start: 20180920, end: 20190218

REACTIONS (18)
  - Depressed level of consciousness [None]
  - Crying [None]
  - Bruxism [None]
  - Palpitations [None]
  - Hypoaesthesia [None]
  - Mood altered [None]
  - Confusional state [None]
  - Speech disorder [None]
  - Anxiety [None]
  - Suicidal ideation [None]
  - Apathy [None]
  - Fatigue [None]
  - Migraine with aura [None]
  - Headache [None]
  - Restlessness [None]
  - Sleep disorder [None]
  - Pain [None]
  - Depression [None]

NARRATIVE: CASE EVENT DATE: 20180926
